FAERS Safety Report 8398366-3 (Version None)
Quarter: 2012Q2

REPORT INFORMATION
  Report Type: 
  Country: None (occurrence: None)
  Receive Date: 20120531
  Receipt Date: 20120522
  Transmission Date: 20120825
  Serious: Yes (Other)
  Sender: FDA-Public Use
  Company Number: US-BAYER-2011-112977

PATIENT
  Age: 38 Year
  Sex: Female
  Weight: 57.596 kg

DRUGS (2)
  1. YASMIN [Suspect]
     Dosage: UNK
     Route: 048
     Dates: start: 20070201, end: 20090201
  2. DROSPIRENONE AND ETHINYL ESTRADIOL [Suspect]
     Dosage: UNK
     Route: 048
     Dates: start: 20070201, end: 20090201

REACTIONS (9)
  - GENERAL PHYSICAL HEALTH DETERIORATION [None]
  - DEEP VEIN THROMBOSIS [None]
  - INJURY [None]
  - PAIN [None]
  - MENTAL DISORDER [None]
  - ANXIETY [None]
  - INTRACRANIAL VENOUS SINUS THROMBOSIS [None]
  - THROMBOSIS [None]
  - EMOTIONAL DISTRESS [None]
